FAERS Safety Report 6162632-2 (Version None)
Quarter: 2009Q2

REPORT INFORMATION
  Report Type: 
  Country: None (occurrence: None)
  Receive Date: 20090421
  Receipt Date: 20090409
  Transmission Date: 20091009
  Serious: Yes (Congenital Anomaly)
  Sender: FDA-Public Use
  Company Number: US-AMGEN-US342343

PATIENT

DRUGS (12)
  1. ENBREL [Suspect]
     Route: 064
     Dates: start: 20080316, end: 20081212
  2. VITAMIN TAB [Concomitant]
     Route: 064
     Dates: start: 20080501, end: 20081212
  3. CALCIUM [Concomitant]
     Route: 064
     Dates: start: 20080316, end: 20081212
  4. IRON [Concomitant]
     Route: 064
     Dates: start: 20080306, end: 20080916
  5. FOLIC ACID [Concomitant]
     Route: 064
     Dates: start: 20080316, end: 20081212
  6. FISH OIL [Concomitant]
     Route: 064
     Dates: start: 20080630, end: 20081101
  7. FISH OIL [Concomitant]
     Route: 064
     Dates: start: 20080316, end: 20080629
  8. PLAQUENIL [Concomitant]
     Route: 064
     Dates: start: 20080316, end: 20081212
  9. LEVOTHYROXINE SODIUM [Concomitant]
     Route: 064
     Dates: start: 20080316, end: 20081212
  10. TYLENOL [Concomitant]
     Route: 064
     Dates: start: 20081022, end: 20081101
  11. TYLENOL [Concomitant]
     Route: 062
     Dates: start: 20080316, end: 20081021
  12. INFLUENZA VACCINE [Concomitant]
     Dates: start: 20081016, end: 20081016

REACTIONS (4)
  - ATRIAL SEPTAL DEFECT [None]
  - CONGENITAL MITRAL VALVE INCOMPETENCE [None]
  - MATERNAL DRUGS AFFECTING FOETUS [None]
  - PULMONARY ARTERY STENOSIS CONGENITAL [None]
